FAERS Safety Report 8922040 (Version 1)
Quarter: 2012Q4

REPORT INFORMATION
  Report Type: 
  Country: BR (occurrence: BR)
  Receive Date: 20121123
  Receipt Date: 20121123
  Transmission Date: 20130627
  Serious: Yes (Hospitalization, Other)
  Sender: FDA-Public Use
  Company Number: PHHY2012BR105554

PATIENT
  Sex: Female

DRUGS (3)
  1. TRILEPTAL [Suspect]
     Indication: CONVULSION
     Dosage: 4 DF, daily
     Route: 048
     Dates: start: 201109
  2. GARDENAL ^AVENTIS^ [Suspect]
     Indication: CONVULSION
     Dosage: 2 DF, daily
     Dates: start: 201109
  3. DIAZEPAM [Concomitant]
     Indication: AGITATION
     Dosage: 2 DF, daily
     Route: 048

REACTIONS (3)
  - Coma [Recovering/Resolving]
  - Convulsion [Recovering/Resolving]
  - Urinary tract infection [Recovering/Resolving]
